FAERS Safety Report 5470332-7 (Version None)
Quarter: 2007Q3

REPORT INFORMATION
  Report Type: 
  Country: None (occurrence: None)
  Receive Date: 20070925
  Receipt Date: 20070925
  Transmission Date: 20080115
  Serious: Yes (Other)
  Sender: FDA-Public Use
  Company Number: S07-FRA-05138-01

PATIENT
  Sex: Male

DRUGS (4)
  1. ESCITALOPRAM [Suspect]
     Dosage: 20 MG QD PO
     Route: 048
  2. HAVLANE (LOPRAZOLAM MESILATE) [Suspect]
  3. ALPRAZOLAM [Suspect]
  4. ALCOHOL [Suspect]

REACTIONS (7)
  - AGITATION [None]
  - ALCOHOL INTERACTION [None]
  - AMNESIA [None]
  - ANXIETY [None]
  - BLOOD ALCOHOL INCREASED [None]
  - CONFUSIONAL STATE [None]
  - HALLUCINATION [None]
